FAERS Safety Report 13192055 (Version 3)
Quarter: 2017Q2

REPORT INFORMATION
  Report Type: Spontaneous
  Country: US (occurrence: US)
  Receive Date: 20170207
  Receipt Date: 20170526
  Transmission Date: 20170830
  Serious: No
  Sender: FDA-Public Use
  Company Number: US-PFIZER INC-2017050067

PATIENT
  Age: 74 Year
  Sex: Male

DRUGS (2)
  1. OXYCODONE [Suspect]
     Active Substance: OXYCODONE
     Dosage: UNK
  2. DOXYCYCLINE HYCLATE. [Suspect]
     Active Substance: DOXYCYCLINE HYCLATE
     Dosage: UNK

REACTIONS (1)
  - Drug hypersensitivity [Unknown]
